FAERS Safety Report 8064647-6 (Version None)
Quarter: 2012Q1

REPORT INFORMATION
  Report Type: 
  Country: None (occurrence: None)
  Receive Date: 20120123
  Receipt Date: 20120113
  Transmission Date: 20120608
  Serious: Yes (Disabling)
  Sender: FDA-Public Use
  Company Number: FR-ASTRAZENECA-2011SE78310

PATIENT
  Age: 19191 Day
  Sex: Male

DRUGS (6)
  1. TRANXENE [Concomitant]
     Indication: ANXIOLYTIC THERAPY
     Dates: start: 20100522
  2. IMOVANE [Concomitant]
     Indication: SEDATIVE THERAPY
     Dates: start: 20110406
  3. QUETIAPINE FUMARATE [Suspect]
     Route: 048
     Dates: start: 20111208, end: 20111211
  4. QUETIAPINE FUMARATE [Suspect]
     Route: 048
     Dates: start: 20111207, end: 20111207
  5. QUETIAPINE FUMARATE [Suspect]
     Indication: BIPOLAR DISORDER
     Route: 048
     Dates: start: 20111206, end: 20111206
  6. OMEPRAZOLE [Concomitant]
     Indication: ANTACID THERAPY
     Dates: start: 20100111

REACTIONS (1)
  - PARADOXICAL DRUG REACTION [None]
